FAERS Safety Report 7403310-9 (Version None)
Quarter: 2011Q2

REPORT INFORMATION
  Report Type: 
  Country: None (occurrence: None)
  Receive Date: 20110408
  Receipt Date: 20110405
  Transmission Date: 20111010
  Serious: Yes (Hospitalization, Other)
  Sender: FDA-Public Use
  Company Number: JP-PFIZER INC-2011058260

PATIENT

DRUGS (1)
  1. NORVASC [Suspect]

REACTIONS (5)
  - OVERDOSE [None]
  - DEVICE RELATED INFECTION [None]
  - PANCREATITIS [None]
  - BLOOD PRESSURE DECREASED [None]
  - URINARY RETENTION [None]
